FAERS Safety Report 5727913-2 (Version None)
Quarter: 2008Q2

REPORT INFORMATION
  Report Type: 
  Country: None (occurrence: None)
  Receive Date: 20080430
  Receipt Date: 20080418
  Transmission Date: 20081010
  Serious: Yes (Hospitalization)
  Sender: FDA-Public Use
  Company Number: 233759J08USA

PATIENT
  Age: 46 Year
  Sex: Male
  Weight: 61.2356 kg

DRUGS (5)
  1. REBIF [Suspect]
     Indication: MULTIPLE SCLEROSIS
     Dosage: 44 MCG, 3 IN 1 WEEKS, SUBCUTANEOUS
     Route: 058
     Dates: start: 20071019, end: 20080101
  2. NEURONTIN [Concomitant]
  3. OXYCONTIN [Concomitant]
  4. SOMA [Concomitant]
  5. VALIUM [Concomitant]

REACTIONS (4)
  - ANXIETY [None]
  - DISORIENTATION [None]
  - HEADACHE [None]
  - PYREXIA [None]
